FAERS Safety Report 4615541-1 (Version None)
Quarter: 2005Q1

REPORT INFORMATION
  Report Type: 
  Country: None (occurrence: None)
  Receive Date: 20050317
  Receipt Date: 20050309
  Transmission Date: 20050727
  Serious: Yes (Hospitalization, Disabling)
  Sender: FDA-Public Use
  Company Number: TPA2005A00278

PATIENT
  Age: 56 Year
  Sex: Male
  Weight: 108.8633 kg

DRUGS (4)
  1. ACTOS [Suspect]
     Indication: DIABETES MELLITUS NON-INSULIN-DEPENDENT
     Dosage: 30 MG, 1 IN 1 D, PER ORAL
     Route: 048
  2. FUROSEMIDE (FUROSEMIDE) (20 MILLIGRAM) [Concomitant]
  3. ULTRAM (TRAMADOL HYDROCHLORIDE) (50 MILLIGRAM, TABLETS) [Concomitant]
  4. ASPIRIN (ACETYLSALICYLIC ACID) (81 MILLIGRAM) [Concomitant]

REACTIONS (3)
  - ASTHENIA [None]
  - COLON CANCER [None]
  - INTESTINAL ANASTOMOTIC LEAK [None]
